FAERS Safety Report 6966427-9 (Version None)
Quarter: 2010Q3

REPORT INFORMATION
  Report Type: 
  Country: None (occurrence: None)
  Receive Date: 20100906
  Receipt Date: 20100831
  Transmission Date: 20110219
  Serious: Yes (Disabling, Other)
  Sender: FDA-Public Use
  Company Number: JP-BRISTOL-MYERS SQUIBB COMPANY-14008767

PATIENT
  Age: 67 Year
  Sex: Female

DRUGS (3)
  1. TAXOL [Suspect]
     Indication: OVARIAN CANCER
     Dosage: 1DF: 175MG/M SUP(2)(90% OF PACLITAXEL = 210 MG/BODY)5TH COURSE WITHDRAWN
     Route: 041
     Dates: start: 20070726
  2. PACLITAXEL [Suspect]
     Indication: OVARIAN CANCER
     Dosage: ALSO 180 MG/DAY ; 4 TH CYCLE COMPLETED ON 11-OCT-07
     Route: 041
     Dates: start: 20070816
  3. CARBOMERCK [Suspect]
     Dosage: ALSO 400MG ON 11-OCT-2007;1DF:500MG/BODY,AUC 5 ON 20-NOV-2007,600MG/BODY.5TH COURSE;WITHDRAWN
     Route: 041
     Dates: start: 20070726

REACTIONS (2)
  - GENERALISED OEDEMA [None]
  - SCLERODERMA [None]
